FAERS Safety Report 9760947 (Version 1)
Quarter: 2013Q4

REPORT INFORMATION
  Report Type: Spontaneous
  Country: US (occurrence: US)
  Receive Date: 20131216
  Receipt Date: 20131216
  Transmission Date: 20140711
  Serious: No
  Sender: FDA-Public Use
  Company Number: US-PFIZER INC-2013357603

PATIENT
  Age: 70 Year
  Sex: Male
  Weight: 94.79 kg

DRUGS (4)
  1. CELEBREX [Suspect]
     Indication: PAIN
     Dosage: 200 MG, AS NEEDED
     Route: 048
     Dates: start: 2009, end: 201312
  2. ASPIRIN [Concomitant]
     Dosage: 81 MG, UNK
  3. PLAVIX [Concomitant]
     Dosage: 75 MG, UNK
  4. LISINOPRIL [Concomitant]
     Indication: HYPERTENSION
     Dosage: 20 MG, UNK

REACTIONS (3)
  - Inappropriate schedule of drug administration [Unknown]
  - Pollakiuria [Recovering/Resolving]
  - Micturition disorder [Recovering/Resolving]
